FAERS Safety Report 15756257 (Version 1)
Quarter: 2018Q4

REPORT INFORMATION
  Report Type: Spontaneous
  Country: US (occurrence: US)
  Receive Date: 20181206
  Receipt Date: 20181206
  Transmission Date: 20190205
  Serious: Yes (Hospitalization)
  Sender: FDA-Public Use
  Company Number: None

PATIENT
  Sex: Female

DRUGS (19)
  1. HYDRALAZINE [Concomitant]
     Active Substance: HYDRALAZINE HYDROCHLORIDE
  2. FENOFIBRATE. [Concomitant]
     Active Substance: FENOFIBRATE
  3. FLORASTOR [Concomitant]
     Active Substance: SACCHAROMYCES CEREVISIAE
  4. METOPROLOL. [Concomitant]
     Active Substance: METOPROLOL
  5. OMPERAZOLE [Concomitant]
     Active Substance: OMEPRAZOLE
  6. TOPIRAMATE. [Concomitant]
     Active Substance: TOPIRAMATE
  7. TRESIBA [Concomitant]
     Active Substance: INSULIN DEGLUDEC
  8. BOSULIF [Suspect]
     Active Substance: BOSUTINIB MONOHYDRATE
     Indication: CHRONIC MYELOID LEUKAEMIA
     Route: 048
     Dates: start: 20181031
  9. NITROGLYCERIN. [Concomitant]
     Active Substance: NITROGLYCERIN
  10. VITAMIN D [Concomitant]
     Active Substance: CHOLECALCIFEROL
  11. CLOPIDOGREL [Concomitant]
     Active Substance: CLOPIDOGREL BISULFATE
  12. CORLANOR [Concomitant]
     Active Substance: IVABRADINE HYDROCHLORIDE
  13. FUROSEMIDE. [Concomitant]
     Active Substance: FUROSEMIDE
  14. OMEGA-3 ACIDS [Concomitant]
     Active Substance: OMEGA-3 FATTY ACIDS
  15. POT CL MICRO [Concomitant]
  16. SPIRONACTOLONE [Concomitant]
  17. ATORVASTATIN [Concomitant]
     Active Substance: ATORVASTATIN
  18. PAROXETINE. [Concomitant]
     Active Substance: PAROXETINE
  19. VANCOMYCIN [Concomitant]
     Active Substance: VANCOMYCIN

REACTIONS (1)
  - Hospitalisation [None]
